FAERS Safety Report 17049155 (Version 1)
Quarter: 2019Q4

REPORT INFORMATION
  Report Type: Spontaneous
  Country: US (occurrence: US)
  Receive Date: 20191021
  Receipt Date: 20191021
  Transmission Date: 20200122
  Serious: No
  Sender: FDA-Public Use
  Company Number: None

PATIENT
  Age: 73 Year
  Sex: Male

DRUGS (1)
  1. ZYTIGA [Suspect]
     Active Substance: ABIRATERONE ACETATE
     Route: 048
     Dates: start: 201610

REACTIONS (4)
  - Pain [None]
  - Joint stiffness [None]
  - Joint range of motion decreased [None]
  - Musculoskeletal stiffness [None]

NARRATIVE: CASE EVENT DATE: 20190930
